FAERS Safety Report 4460649-7 (Version None)
Quarter: 2004Q3

REPORT INFORMATION
  Report Type: 
  Country: None (occurrence: None)
  Receive Date: 20040928
  Receipt Date: 20040712
  Transmission Date: 20050211
  Serious: No
  Sender: FDA-Public Use
  Company Number: US-GLAXOSMITHKLINE-A0517851A

PATIENT
  Age: 26 Year
  Sex: Female
  Weight: 64.5 kg

DRUGS (4)
  1. ADVAIR DISKUS 100/50 [Suspect]
     Indication: ASTHMA
     Dosage: 1PUFF TWICE PER DAY
     Route: 055
     Dates: start: 20040528, end: 20040611
  2. ALLEGRA [Concomitant]
  3. NASACORT [Concomitant]
  4. ALLERGY SHOTS [Concomitant]

REACTIONS (2)
  - CONTUSION [None]
  - THIRST [None]
